FAERS Safety Report 26019333 (Version 1)
Quarter: 2025Q4

REPORT INFORMATION
  Report Type: Report from Study
  Country: CA (occurrence: CA)
  Receive Date: 20251110
  Receipt Date: 20251110
  Transmission Date: 20260117
  Serious: Yes (Other)
  Sender: ROCHE
  Company Number: CA-ROCHE-10000431951

PATIENT
  Sex: Male

DRUGS (4)
  1. TOCILIZUMAB [Suspect]
     Active Substance: TOCILIZUMAB
     Indication: Histiocytosis-lymphadenopathy plus syndrome
     Route: 058
  2. SIROLIMUS [Concomitant]
     Active Substance: SIROLIMUS
     Dosage: TARGET LEVEL: 7-10NG/ML
  3. TRAMETINIB [Concomitant]
     Active Substance: TRAMETINIB
  4. TRAMETINIB [Concomitant]
     Active Substance: TRAMETINIB

REACTIONS (1)
  - Neuropathy peripheral [Unknown]
